FAERS Safety Report 4991398-4 (Version None)
Quarter: 2006Q2

REPORT INFORMATION
  Report Type: 
  Country: None (occurrence: None)
  Receive Date: 20060501
  Receipt Date: 20060418
  Transmission Date: 20061013
  Serious: Yes (Other)
  Sender: FDA-Public Use
  Company Number: B0421594A

PATIENT
  Age: 65 Year
  Sex: Male

DRUGS (9)
  1. CEFUROXIME SODIUM (FORMULATION UNKNOWN) (CEFUROXIME SODIUM) (GENERIC) [Suspect]
     Dosage: 1.5 GRAM(S) / THREE TIMES PER DAY / INTRAVENOUS
     Route: 042
  2. FORTAZ [Suspect]
     Dosage: 2 GRAM(S) / TWICE PER DAY / INTRAVENOUS
     Route: 042
  3. METFORMIN HYDROCHLORIDE [Concomitant]
  4. RAMIPRIL [Concomitant]
  5. INDAPAMIDE [Concomitant]
  6. GABAPENTIN [Concomitant]
  7. ALLOPURINOL [Concomitant]
  8. CIPROFLOXACIN [Concomitant]
  9. INSULIN [Concomitant]

REACTIONS (4)
  - CONFUSIONAL STATE [None]
  - MYOCLONUS [None]
  - PNEUMONIA ASPIRATION [None]
  - SYNCOPE [None]
